FAERS Safety Report 11698225 (Version 2)
Quarter: 2015Q4

REPORT INFORMATION
  Report Type: Spontaneous
  Country: JP (occurrence: JP)
  Receive Date: 20151104
  Receipt Date: 20151218
  Transmission Date: 20160304
  Serious: Yes (Hospitalization)
  Sender: FDA-Public Use
  Company Number: PHHY2015JP142933

PATIENT
  Age: 91 Year
  Sex: Female
  Weight: 34 kg

DRUGS (2)
  1. FAMCICLOVIR. [Suspect]
     Active Substance: FAMCICLOVIR
     Indication: HERPES ZOSTER
     Dosage: 500 MG, TID
     Route: 065
  2. CEFOTIAM [Concomitant]
     Active Substance: CEFOTIAM
     Indication: URINARY TRACT INFECTION
     Dosage: 2 G, QD
     Route: 065

REACTIONS (5)
  - Acute kidney injury [Recovering/Resolving]
  - Dehydration [Unknown]
  - Decreased appetite [Unknown]
  - Drug level increased [Recovering/Resolving]
  - Malaise [Unknown]
